FAERS Safety Report 7076976-3 (Version None)
Quarter: 2010Q4

REPORT INFORMATION
  Report Type: 
  Country: None (occurrence: None)
  Receive Date: 20101029
  Receipt Date: 20101029
  Transmission Date: 20110411
  Serious: Yes (Hospitalization)
  Sender: FDA-Public Use
  Company Number: None

PATIENT
  Age: 58 Year
  Sex: Male
  Weight: 121 kg

DRUGS (6)
  1. DECITABINE 0.2MG/KG [Suspect]
     Indication: MYELODYSPLASTIC SYNDROME
     Dosage: 24.16MG 2X/WK SUB-Q INJ.
     Dates: start: 20100913, end: 20101005
  2. CIPRO [Concomitant]
  3. ACYCLOVIR SODIUM [Concomitant]
  4. ATENOLOL [Concomitant]
  5. ZYRTEC [Concomitant]
  6. MECLAZINE [Concomitant]

REACTIONS (3)
  - LUNG CONSOLIDATION [None]
  - PLEURAL EFFUSION [None]
  - PYREXIA [None]
